FAERS Safety Report 19370250 (Version 2)
Quarter: 2021Q2

REPORT INFORMATION
  Report Type: Spontaneous
  Country: US (occurrence: US)
  Receive Date: 20210603
  Receipt Date: 20210617
  Transmission Date: 20210717
  Serious: Yes (Life-Threatening, Hospitalization)
  Sender: FDA-Public Use
  Company Number: US-TEVA-2021-US-1917528

PATIENT
  Age: 50 Year
  Sex: Male

DRUGS (3)
  1. EPTIFIBATIDE. [Suspect]
     Active Substance: EPTIFIBATIDE
     Indication: ADJUVANT THERAPY
     Route: 065
  2. HEPARIN [Concomitant]
     Active Substance: HEPARIN SODIUM
     Indication: ADJUVANT THERAPY
     Route: 065
  3. TICAGRELOR. [Concomitant]
     Active Substance: TICAGRELOR
     Indication: ADJUVANT THERAPY
     Route: 065

REACTIONS (2)
  - Immune thrombocytopenia [Recovering/Resolving]
  - Vascular stent thrombosis [Recovered/Resolved]
